FAERS Safety Report 6837453-5 (Version None)
Quarter: 2010Q3

REPORT INFORMATION
  Report Type: 
  Country: None (occurrence: None)
  Receive Date: 20100713
  Receipt Date: 20100706
  Transmission Date: 20110219
  Serious: Yes (Other)
  Sender: FDA-Public Use
  Company Number: CA-MERCK-1007USA00652

PATIENT
  Age: 56 Year
  Sex: Male
  Weight: 78 kg

DRUGS (5)
  1. ISENTRESS [Suspect]
     Route: 048
  2. INTELENCE [Concomitant]
     Route: 048
  3. ABACAVIR SULFATE AND LAMIVUDINE [Concomitant]
     Route: 048
  4. PREZISTA [Concomitant]
     Route: 065
  5. RITONAVIR [Concomitant]
     Route: 065

REACTIONS (1)
  - PROSTATE CANCER [None]
